FAERS Safety Report 7723287-6 (Version None)
Quarter: 2011Q3

REPORT INFORMATION
  Report Type: 
  Country: None (occurrence: None)
  Receive Date: 20110901
  Receipt Date: 20110826
  Transmission Date: 20111222
  Serious: Yes (Other)
  Sender: FDA-Public Use
  Company Number: US-AMGEN-USASP2011018581

PATIENT
  Sex: Female

DRUGS (10)
  1. ARANESP [Suspect]
     Indication: RENAL FAILURE CHRONIC
     Dosage: 125 MUG, QWK
     Route: 042
     Dates: start: 20101108, end: 20101125
  2. ARANESP [Suspect]
     Dosage: 150 MUG, QWK
     Route: 042
     Dates: start: 20101126, end: 20101228
  3. ARANESP [Suspect]
     Dosage: 40 MUG, QWK
     Route: 042
     Dates: start: 20110302, end: 20110315
  4. ARANESP [Suspect]
     Dosage: 25 MUG, Q2WK
     Dates: start: 20110216, end: 20110301
  5. ARANESP [Suspect]
     Dosage: 80 MUG, QWK
     Route: 042
     Dates: start: 20110316, end: 20110322
  6. ARANESP [Suspect]
     Dosage: UNK
     Dates: start: 20110106, end: 20110215
  7. ARANESP [Suspect]
     Dosage: 125 MUG, QWK
     Route: 042
     Dates: start: 20110413, end: 20110425
  8. ARANESP [Suspect]
     Dosage: 150 MUG, QWK
     Route: 042
     Dates: start: 20110427
  9. ARANESP [Suspect]
     Dosage: 100 MUG, QWK
     Route: 042
     Dates: start: 20101229, end: 20110105
  10. ARANESP [Suspect]
     Dosage: 100 MUG, QWK
     Route: 042
     Dates: start: 20110323, end: 20110412

REACTIONS (5)
  - DRUG INEFFECTIVE [None]
  - ATELECTASIS [None]
  - CARDIOMEGALY [None]
  - PULMONARY FIBROSIS [None]
  - HEPATITIS B CORE ANTIBODY POSITIVE [None]
